FAERS Safety Report 23447285 (Version 1)
Quarter: 2024Q1

REPORT INFORMATION
  Report Type: Spontaneous
  Country: FR (occurrence: FR)
  Receive Date: 20240126
  Receipt Date: 20240126
  Transmission Date: 20240410
  Serious: Yes (Hospitalization, Disabling)
  Sender: FDA-Public Use
  Company Number: FR-FreseniusKabi-FK202401105

PATIENT

DRUGS (1)
  1. PROPOFOL [Suspect]
     Active Substance: PROPOFOL
     Indication: Product used for unknown indication
     Dosage: AMPOULE

REACTIONS (2)
  - Occupational exposure to product [Recovered/Resolved with Sequelae]
  - Injury associated with device [Recovered/Resolved with Sequelae]
